FAERS Safety Report 18579270 (Version 2)
Quarter: 2020Q4

REPORT INFORMATION
  Report Type: Spontaneous
  Country: DE (occurrence: DE)
  Receive Date: 20201204
  Receipt Date: 20201211
  Transmission Date: 20210114
  Serious: Yes (Death, Hospitalization)
  Sender: FDA-Public Use
  Company Number: DE-ROCHE-2724553

PATIENT
  Age: 45 Year
  Sex: Male

DRUGS (2)
  1. QUETIAPIN [Concomitant]
     Active Substance: QUETIAPINE
     Indication: DEPRESSION
  2. OCREVUS [Suspect]
     Active Substance: OCRELIZUMAB
     Indication: MULTIPLE SCLEROSIS
     Dosage: DAILY DOSE: 600 MG MILLGRAM(S) EVERY 6 MONTHS
     Route: 042
     Dates: start: 20200604

REACTIONS (4)
  - Pulmonary embolism [Fatal]
  - Dyspnoea [Unknown]
  - Circulatory collapse [Fatal]
  - Performance status decreased [Unknown]

NARRATIVE: CASE EVENT DATE: 20201119
